FAERS Safety Report 16812699 (Version 4)
Quarter: 2019Q4

REPORT INFORMATION
  Report Type: Report from Study
  Country: FR (occurrence: FR)
  Receive Date: 20190916
  Receipt Date: 20191101
  Transmission Date: 20200122
  Serious: Yes (Life-Threatening)
  Sender: FDA-Public Use
  Company Number: PHHO2019FR009195

PATIENT
  Age: 47 Year
  Weight: 50 kg

DRUGS (4)
  1. DABRAFENIB [Suspect]
     Active Substance: DABRAFENIB
     Indication: MALIGNANT MELANOMA
     Dosage: 200 MG, BID
     Route: 048
     Dates: start: 20190618
  2. ADAPALEN/BENZOYL PEROXIDE [Concomitant]
     Indication: DERMATITIS ACNEIFORM
     Dosage: UNK
     Route: 065
     Dates: start: 20190716
  3. METOPIMAZINE [Concomitant]
     Active Substance: METOPIMAZINE
     Indication: NAUSEA
     Dosage: UNK
     Route: 065
     Dates: start: 20190703
  4. TRAMETINIB [Suspect]
     Active Substance: TRAMETINIB
     Indication: MALIGNANT MELANOMA
     Dosage: 2 MG, QD
     Route: 048
     Dates: start: 20190619, end: 20190910

REACTIONS (1)
  - Pulmonary embolism [Not Recovered/Not Resolved]

NARRATIVE: CASE EVENT DATE: 20190910
